FAERS Safety Report 16202039 (Version 2)
Quarter: 2019Q2

REPORT INFORMATION
  Report Type: Spontaneous
  Country: CN (occurrence: CN)
  Receive Date: 20190416
  Receipt Date: 20190530
  Transmission Date: 20190711
  Serious: Yes (Other)
  Sender: FDA-Public Use
  Company Number: CN-VALIDUS PHARMACEUTICALS LLC-CN-2019VAL000203

PATIENT

DRUGS (8)
  1. LANTHANUM CARBONATE. [Concomitant]
     Active Substance: LANTHANUM CARBONATE
     Indication: HYPERPARATHYROIDISM SECONDARY
     Dosage: 0.5, 3 IN 1 D
     Route: 048
     Dates: start: 201805
  2. ROCALTROL [Suspect]
     Active Substance: CALCITRIOL
     Indication: HYPERPARATHYROIDISM SECONDARY
     Dosage: 7.5 ?G, EVERY WEEK
     Route: 065
     Dates: start: 201506
  3. ROCALTROL [Suspect]
     Active Substance: CALCITRIOL
     Dosage: 7.5 ?G, EVERY WEEK
     Route: 065
     Dates: start: 201804
  4. CINACALCET. [Concomitant]
     Active Substance: CINACALCET
     Indication: HYPERPARATHYROIDISM SECONDARY
     Dosage: 25 MG, QD
     Dates: start: 201506
  5. DANDELION [Concomitant]
     Active Substance: TARAXACUM OFFICINALE POLLEN
     Indication: HYPERPARATHYROIDISM SECONDARY
     Dosage: UNK
     Dates: start: 201708
  6. ROCALTROL [Suspect]
     Active Substance: CALCITRIOL
     Dosage: 5 ?G,  EVERY WEEK
     Route: 065
     Dates: start: 201802
  7. ROCALTROL [Suspect]
     Active Substance: CALCITRIOL
     Dosage: 7.5 ?G, EVERY WEEK
     Route: 065
     Dates: start: 201705, end: 201707
  8. ROCALTROL [Suspect]
     Active Substance: CALCITRIOL
     Dosage: 7.5 ?G, EVERY WEEK
     Route: 065
     Dates: start: 201708

REACTIONS (4)
  - Thrombosis [Unknown]
  - Complications of transplanted kidney [Unknown]
  - Vascular calcification [Unknown]
  - Renal transplant [Unknown]

NARRATIVE: CASE EVENT DATE: 201605
